FAERS Safety Report 18961598 (Version 4)
Quarter: 2021Q3

REPORT INFORMATION
  Report Type: Report from Study
  Country: US (occurrence: US)
  Receive Date: 20210303
  Receipt Date: 20210707
  Transmission Date: 20211014
  Serious: Yes (Death, Hospitalization, Other)
  Sender: FDA-Public Use
  Company Number: US-INSMED, INC.-US-INS-20-01950

PATIENT
  Age: 59 Year
  Sex: Male

DRUGS (3)
  1. ARIKAYCE [Suspect]
     Active Substance: AMIKACIN
     Indication: MYCOBACTERIUM AVIUM COMPLEX INFECTION
     Dosage: 590 MILLIGRAM, QD
     Route: 055
     Dates: start: 202009
  2. SALINE [Concomitant]
     Active Substance: SODIUM CHLORIDE
     Indication: PRODUCT USED FOR UNKNOWN INDICATION
     Dosage: UNK
     Route: 065
  3. ARIKAYCE [Suspect]
     Active Substance: AMIKACIN
     Indication: ASTHMA
     Dosage: 590 MILLIGRAM, QOD
     Route: 055

REACTIONS (11)
  - Pulmonary embolism [Not Recovered/Not Resolved]
  - Hospitalisation [Unknown]
  - Product dose omission issue [Unknown]
  - Off label use [Unknown]
  - Death [Fatal]
  - Sputum increased [Not Recovered/Not Resolved]
  - Productive cough [Unknown]
  - Hypersensitivity [Not Recovered/Not Resolved]
  - Insomnia [Unknown]
  - Cough [Not Recovered/Not Resolved]
  - Dyspnoea [Not Recovered/Not Resolved]

NARRATIVE: CASE EVENT DATE: 2020
